FAERS Safety Report 12936859 (Version 1)
Quarter: 2016Q4

REPORT INFORMATION
  Report Type: Spontaneous
  Country: BR (occurrence: BR)
  Receive Date: 20161114
  Receipt Date: 20161114
  Transmission Date: 20170207
  Serious: Yes (Other)
  Sender: FDA-Public Use
  Company Number: BR-BAYER-2016-212609

PATIENT

DRUGS (1)
  1. ACETYLSALICYLIC ACID({=100 MG) [Suspect]
     Active Substance: ASPIRIN
     Indication: PLACENTAL INSUFFICIENCY
     Dosage: BETWEEN 25 WEEKS OF GESTATION AND 30 WEEKS OF GESTATION

REACTIONS (4)
  - Low birth weight baby [None]
  - Foetal growth restriction [None]
  - Foetal exposure during pregnancy [None]
  - Premature baby [None]
